FAERS Safety Report 24834066 (Version 1)
Quarter: 2025Q1

REPORT INFORMATION
  Report Type: Spontaneous
  Country: IT (occurrence: IT)
  Receive Date: 20250113
  Receipt Date: 20250113
  Transmission Date: 20250409
  Serious: Yes (Hospitalization)
  Sender: NOVO NORDISK
  Company Number: None

PATIENT
  Age: 89 Year
  Sex: Male

DRUGS (1)
  1. XULTOPHY 100/3.6 [Suspect]
     Active Substance: INSULIN DEGLUDEC\LIRAGLUTIDE
     Indication: Product used for unknown indication
     Route: 058

REACTIONS (2)
  - Confusional state [Recovered/Resolved]
  - Hyperglycaemia [Recovering/Resolving]

NARRATIVE: CASE EVENT DATE: 20240915
